FAERS Safety Report 6422893-9 (Version None)
Quarter: 2009Q4

REPORT INFORMATION
  Report Type: 
  Country: None (occurrence: None)
  Receive Date: 20091102
  Receipt Date: 20091021
  Transmission Date: 20100525
  Serious: Yes (Hospitalization)
  Sender: FDA-Public Use
  Company Number: HK-ROCHE-665304

PATIENT
  Age: 50 Year
  Sex: Male

DRUGS (2)
  1. PEG-INTERFERON ALFA 2A (RO 25-8310) [Suspect]
     Route: 058
     Dates: start: 20091007, end: 20091021
  2. RIBAVIRIN [Suspect]
     Dosage: FREQ: DAILY
     Route: 048
     Dates: start: 20091007, end: 20091021

REACTIONS (3)
  - EPISTAXIS [None]
  - GENITAL SWELLING [None]
  - GINGIVAL BLEEDING [None]
